FAERS Safety Report 14281395 (Version 4)
Quarter: 2018Q3

REPORT INFORMATION
  Report Type: Spontaneous
  Country: US (occurrence: US)
  Receive Date: 20171213
  Receipt Date: 20180725
  Transmission Date: 20181010
  Serious: No
  Sender: FDA-Public Use
  Company Number: US-PFIZER INC-2017533018

PATIENT
  Age: 54 Year
  Sex: Male
  Weight: 92.53 kg

DRUGS (2)
  1. CHANTIX [Suspect]
     Active Substance: VARENICLINE TARTRATE
     Indication: SMOKING CESSATION THERAPY
     Dosage: UNK
     Dates: start: 2014
  2. CHANTIX [Suspect]
     Active Substance: VARENICLINE TARTRATE
     Dosage: 0.5 MG, DAILY (DAY 1 TO 3)
     Dates: start: 2015, end: 2015

REACTIONS (3)
  - Poor quality drug administered [Unknown]
  - Drug ineffective [Recovered/Resolved]
  - Product colour issue [Unknown]
